FAERS Safety Report 4779691-1 (Version None)
Quarter: 2005Q3

REPORT INFORMATION
  Report Type: 
  Country: None (occurrence: None)
  Receive Date: 20050914
  Receipt Date: 20050311
  Transmission Date: 20060218
  Serious: Yes (Death, Hospitalization)
  Sender: FDA-Public Use
  Company Number: 163-20785-05030298

PATIENT
  Age: 54 Year
  Sex: Female
  Weight: 75.2971 kg

DRUGS (12)
  1. THALOMID [Suspect]
     Indication: BREAST CANCER
     Dosage: 200 MG, QD, ORAL; 200 MG, QD, ORAL
     Route: 048
     Dates: start: 20041124, end: 20041231
  2. THALOMID [Suspect]
     Indication: BREAST CANCER
     Dosage: 200 MG, QD, ORAL; 200 MG, QD, ORAL
     Route: 048
     Dates: start: 20050111, end: 20050315
  3. XELODA [Suspect]
     Indication: BREAST CANCER
     Dosage: 3000 MG, QD, ORAL
     Route: 048
     Dates: start: 20041124, end: 20050222
  4. MS CONTIN [Concomitant]
  5. ATIVAN [Concomitant]
  6. ZOLOFT [Concomitant]
  7. KLONOPIN [Concomitant]
  8. LEVOXYL [Concomitant]
  9. ALLEGRA [Concomitant]
  10. ZANAFLEX [Concomitant]
  11. PREVACID [Concomitant]
  12. CALCIUM (CALCIUM COMPOUNDS) [Concomitant]

REACTIONS (4)
  - CONDITION AGGRAVATED [None]
  - DEATH [None]
  - DEEP VEIN THROMBOSIS [None]
  - PULMONARY EMBOLISM [None]
